FAERS Safety Report 11025563 (Version 1)
Quarter: 2015Q2

REPORT INFORMATION
  Report Type: Spontaneous
  Country: US (occurrence: US)
  Receive Date: 20150414
  Receipt Date: 20150414
  Transmission Date: 20150821
  Serious: No
  Sender: FDA-Public Use
  Company Number: US-PFIZER INC-2015121140

PATIENT
  Age: 74 Year
  Sex: Male
  Weight: 59 kg

DRUGS (1)
  1. SUTENT [Suspect]
     Active Substance: SUNITINIB MALATE
     Indication: RENAL CANCER
     Dosage: UNK
     Dates: start: 2014, end: 201502

REACTIONS (8)
  - Lethargy [Unknown]
  - Swelling [Unknown]
  - Renal cancer [Unknown]
  - Pallor [Unknown]
  - Fatigue [Unknown]
  - Decreased appetite [Unknown]
  - Disease progression [Unknown]
  - Abdominal pain [Unknown]

NARRATIVE: CASE EVENT DATE: 20150228
